FAERS Safety Report 12504482 (Version 3)
Quarter: 2017Q3

REPORT INFORMATION
  Report Type: Report from Study
  Country: BR (occurrence: BR)
  Receive Date: 20160628
  Receipt Date: 20170908
  Transmission Date: 20171127
  Serious: Yes (Life-Threatening, Other)
  Sender: FDA-Public Use
  Company Number: PHHY2016BR088096

PATIENT
  Age: 69 Year
  Sex: Female
  Weight: 76 kg

DRUGS (11)
  1. PURAN [Concomitant]
     Active Substance: LEVOTHYROXINE SODIUM
     Indication: THYROID DISORDER
     Dosage: 75 MG, QD (4 YEARS AGO)
     Route: 048
  2. RENITEC [Concomitant]
     Active Substance: ENALAPRIL MALEATE
     Indication: PRODUCT USED FOR UNKNOWN INDICATION
     Route: 065
  3. VITALUX PLUS LUTEIN OMEGA 3 [Concomitant]
     Active Substance: MINERALS\OMEGA-3 FATTY ACIDS\VITAMINS
     Indication: RETINAL DISORDER
     Dosage: 2 DF, QD (2 YEARS AGO)
     Route: 048
  4. HIGROTON [Suspect]
     Active Substance: CHLORTHALIDONE
     Indication: HYPERTENSION
     Dosage: 1 DF, BID (1 IN THE MORNING AND 1 IN THE EVENING)
     Route: 048
  5. VALSARTAN. [Suspect]
     Active Substance: VALSARTAN
     Indication: PRODUCT USED FOR UNKNOWN INDICATION
     Route: 065
  6. LOSARTAN. [Concomitant]
     Active Substance: LOSARTAN
     Indication: HYPERTENSION
     Route: 065
  7. IODINE. [Concomitant]
     Active Substance: IODINE
     Indication: PRODUCT USED FOR UNKNOWN INDICATION
     Route: 065
  8. AMLODIPINE [Concomitant]
     Active Substance: AMLODIPINE BESYLATE
     Indication: PRODUCT USED FOR UNKNOWN INDICATION
     Route: 065
  9. CAPOTEN [Concomitant]
     Active Substance: CAPTOPRIL
     Indication: PRODUCT USED FOR UNKNOWN INDICATION
     Route: 065
  10. DIOVAN AMLO FIX [Suspect]
     Active Substance: AMLODIPINE\VALSARTAN
     Indication: HYPERTENSION
     Dosage: 2 DF (AMLODIPINE 5 MG, VALSARTAN 160 MG)
     Route: 048
  11. DIOVAN TRIPLE [Suspect]
     Active Substance: AMLODIPINE BESYLATE\HYDROCHLOROTHIAZIDE\VALSARTAN
     Indication: HYPERTENSION
     Dosage: 1 DF (AMLODIPINE 5 MG AND HYDROCHLOROTHIAZIDE 25 MG AND VALSARTAN 160 MG), QD
     Route: 048
     Dates: end: 20160621

REACTIONS (12)
  - Blood pressure increased [Recovering/Resolving]
  - Body height decreased [Unknown]
  - Drug ineffective [Unknown]
  - Gait disturbance [Recovering/Resolving]
  - Dizziness [Unknown]
  - Pain in extremity [Unknown]
  - Feeling abnormal [Unknown]
  - Haemorrhagic stroke [Unknown]
  - Musculoskeletal chest pain [Unknown]
  - Movement disorder [Unknown]
  - Deafness [Unknown]
  - Fall [Unknown]

NARRATIVE: CASE EVENT DATE: 20160621
